FAERS Safety Report 8932862 (Version 1)
Quarter: 2012Q4

REPORT INFORMATION
  Report Type: 
  Country: US (occurrence: US)
  Receive Date: 20121128
  Receipt Date: 20121128
  Transmission Date: 20130627
  Serious: Yes (Death)
  Sender: FDA-Public Use
  Company Number: US-OTSUKA-US-2012-11671

PATIENT
  Age: 58 Year
  Sex: Female

DRUGS (2)
  1. SAMSCA [Suspect]
     Indication: HYPONATRAEMIA
     Dosage: UNK
     Route: 048
     Dates: start: 2012
  2. WARFARIN [Concomitant]

REACTIONS (4)
  - Sepsis [Fatal]
  - Pneumonia [Fatal]
  - International normalised ratio increased [None]
  - International normalised ratio decreased [None]
